FAERS Safety Report 17888169 (Version 1)
Quarter: 2020Q2

REPORT INFORMATION
  Report Type: Spontaneous
  Country: US (occurrence: US)
  Receive Date: 20200612
  Receipt Date: 20200612
  Transmission Date: 20200714
  Serious: No
  Sender: FDA-Public Use
  Company Number: US-JNJFOC-20200600207

PATIENT
  Age: 84 Year
  Sex: Female
  Weight: 77.18 kg

DRUGS (1)
  1. TYLENOL 8 HR ARTHRITIS PAIN [Suspect]
     Active Substance: ACETAMINOPHEN
     Indication: ARTHRITIS
     Dosage: 4 TABLETS ACCIDENTALLY YESTERDAY ONCE A DAY
     Route: 048
     Dates: start: 20200526

REACTIONS (6)
  - Throat irritation [Not Recovered/Not Resolved]
  - Incorrect dose administered [Unknown]
  - Dyspepsia [Not Recovered/Not Resolved]
  - Insomnia [Recovered/Resolved]
  - Abdominal discomfort [Not Recovered/Not Resolved]
  - Inappropriate schedule of product administration [Unknown]

NARRATIVE: CASE EVENT DATE: 20200526
